FAERS Safety Report 8114227-9 (Version None)
Quarter: 2012Q1

REPORT INFORMATION
  Report Type: 
  Country: None (occurrence: None)
  Receive Date: 20120205
  Receipt Date: 20120125
  Transmission Date: 20120608
  Serious: Yes (Death, Other)
  Sender: FDA-Public Use
  Company Number: JP-BRISTOL-MYERS SQUIBB COMPANY-16369811

PATIENT
  Age: 68 Year
  Sex: Male
  Weight: 58 kg

DRUGS (6)
  1. ERBITUX [Suspect]
     Indication: COLON CANCER
     Dosage: STOPED ON 30SEP09,RESTARTED ON 13OCT09 350MG
     Route: 042
     Dates: start: 20090930
  2. DECADRON [Concomitant]
     Indication: PREMEDICATION
     Route: 042
     Dates: start: 20090930
  3. IRINOTECAN HCL [Concomitant]
     Indication: COLON CANCER
     Route: 042
     Dates: start: 20090930
  4. FLUOROURACIL [Concomitant]
     Indication: COLON CANCER
     Dosage: 3450MG,IV DRIP
     Route: 040
     Dates: start: 20090930
  5. LEUCOVORIN CALCIUM [Concomitant]
     Indication: COLON CANCER
     Route: 042
     Dates: start: 20090930
  6. GRANISETRON [Concomitant]
     Indication: ANTIEMETIC SUPPORTIVE CARE
     Route: 042
     Dates: start: 20090930

REACTIONS (2)
  - NEOPLASM MALIGNANT [None]
  - CHOLANGITIS [None]
